FAERS Safety Report 15288467 (Version 1)
Quarter: 2018Q3

REPORT INFORMATION
  Report Type: Spontaneous
  Country: US (occurrence: US)
  Receive Date: 20180817
  Receipt Date: 20180817
  Transmission Date: 20181010
  Serious: Yes (Death)
  Sender: FDA-Public Use
  Company Number: US-BAYER-2018-153864

PATIENT
  Age: 31 Year
  Sex: Female

DRUGS (1)
  1. ACETYLSALICYLIC ACID({=100 MG) [Suspect]
     Active Substance: ASPIRIN
     Indication: EMBOLISM
     Dosage: 81 MG, QD

REACTIONS (2)
  - Maternal exposure during pregnancy [None]
  - Pancreatic carcinoma stage IV [Fatal]
